FAERS Safety Report 23443777 (Version 2)
Quarter: 2025Q1

REPORT INFORMATION
  Report Type: Spontaneous
  Country: US (occurrence: US)
  Receive Date: 20240125
  Receipt Date: 20250326
  Transmission Date: 20250408
  Serious: Yes (Life-Threatening, Hospitalization)
  Sender: TEVA
  Company Number: US-TEVA-VS-3148979

PATIENT
  Age: 29 Year
  Sex: Female

DRUGS (2)
  1. SORAFENIB [Suspect]
     Active Substance: SORAFENIB
     Indication: Desmoid tumour
     Route: 065
  2. CELECOXIB [Suspect]
     Active Substance: CELECOXIB
     Indication: Desmoid tumour
     Route: 065

REACTIONS (5)
  - Capillary leak syndrome [Recovered/Resolved]
  - Non-cardiogenic pulmonary oedema [Recovering/Resolving]
  - Haemoconcentration [Unknown]
  - Acute respiratory failure [Recovering/Resolving]
  - Pleural effusion [Recovering/Resolving]
